FAERS Safety Report 8781223 (Version 1)
Quarter: 2012Q4

REPORT INFORMATION
  Report Type: 
  Country: US (occurrence: US)
  Receive Date: 20120913
  Receipt Date: 20120913
  Transmission Date: 20130627
  Serious: No
  Sender: FDA-Public Use
  Company Number: US-VERTEX PHARMACEUTICAL INC.-AE-2012-007059

PATIENT
  Age: 51 Year
  Sex: Male
  Weight: 72.73 kg

DRUGS (16)
  1. INCIVEK [Suspect]
     Indication: HEPATITIS C
     Route: 048
     Dates: start: 20120427
  2. RIBAVIRIN [Concomitant]
     Indication: HEPATITIS C
     Route: 048
     Dates: start: 20120427
  3. PEGASYS [Concomitant]
     Indication: HEPATITIS C
     Route: 058
     Dates: start: 20120427
  4. HCTZ [Concomitant]
     Indication: HYPERTENSION
     Route: 048
  5. RITALIN [Concomitant]
     Indication: ATTENTION DEFICIT/HYPERACTIVITY DISORDER
     Route: 048
  6. LITHIUM CARBONATE [Concomitant]
     Indication: BIPOLAR DISORDER
     Route: 048
  7. SAPHRIS [Concomitant]
     Indication: BIPOLAR DISORDER
     Route: 048
  8. SAPHRIS [Concomitant]
     Indication: SCHIZOPHRENIA
  9. TRAZODONE [Concomitant]
     Indication: DEPRESSION
     Route: 048
  10. XANAX [Concomitant]
     Indication: ANXIETY
     Route: 048
  11. OXYCONTIN [Concomitant]
     Indication: PAIN
     Route: 048
  12. FLOMAX [Concomitant]
     Indication: BENIGN PROSTATIC HYPERPLASIA
     Route: 048
  13. CELEXA [Concomitant]
     Indication: DEPRESSION
     Route: 048
  14. OXYBUTYNIN [Concomitant]
     Route: 048
  15. MELOXICAM [Concomitant]
     Indication: ARTHRALGIA
     Route: 048
  16. PERCOCET [Concomitant]
     Indication: PAIN
     Route: 048

REACTIONS (1)
  - Incorrect dose administered [Recovered/Resolved]
